FAERS Safety Report 5764566-1 (Version None)
Quarter: 2008Q2

REPORT INFORMATION
  Report Type: 
  Country: None (occurrence: None)
  Receive Date: 20080610
  Receipt Date: 20080529
  Transmission Date: 20081010
  Serious: Yes (Other)
  Sender: FDA-Public Use
  Company Number: US-PFIZER INC-2008046865

PATIENT
  Sex: Female
  Weight: 75 kg

DRUGS (4)
  1. CHANTIX [Suspect]
     Indication: SMOKING CESSATION THERAPY
     Dosage: FREQ:EVERY DAY
     Dates: start: 20080501, end: 20080501
  2. ALL OTHER THERAPEUTIC PRODUCTS [Concomitant]
  3. PROPANTHELINE BROMIDE [Concomitant]
  4. ALPRAZOLAM [Concomitant]
     Indication: ANXIETY

REACTIONS (3)
  - ANXIETY [None]
  - MOOD SWINGS [None]
  - PANIC ATTACK [None]
